FAERS Safety Report 17090953 (Version 1)
Quarter: 2019Q4

REPORT INFORMATION
  Report Type: Spontaneous
  Country: RU (occurrence: RU)
  Receive Date: 20191129
  Receipt Date: 20191129
  Transmission Date: 20200122
  Serious: Yes (Other)
  Sender: FDA-Public Use
  Company Number: RU-DRREDDYS-RUS/RUS/19/0116358

PATIENT
  Age: 33 Year
  Sex: Female

DRUGS (3)
  1. RAZO 20MG [Suspect]
     Active Substance: RABEPRAZOLE SODIUM
     Indication: DUODENAL ULCER
     Route: 048
     Dates: start: 20190912, end: 20190926
  2. DE-NOL (BISMUTH SUBCITRATE) [Suspect]
     Active Substance: BISMUTH SUBCITRATE
     Indication: DUODENAL ULCER
     Route: 048
     Dates: start: 20190912, end: 20190926
  3. REBAGIT [Suspect]
     Active Substance: REBAMIPIDE
     Indication: DUODENAL ULCER
     Route: 048
     Dates: start: 20190912, end: 20190926

REACTIONS (1)
  - Gastritis haemorrhagic [Recovered/Resolved with Sequelae]

NARRATIVE: CASE EVENT DATE: 20190926
